FAERS Safety Report 25760041 (Version 1)
Quarter: 2025Q3

REPORT INFORMATION
  Report Type: Spontaneous
  Country: US (occurrence: US)
  Receive Date: 20250904
  Receipt Date: 20250904
  Transmission Date: 20251021
  Serious: Yes (Life-Threatening, Hospitalization)
  Sender: MYLAN
  Company Number: US-MYLANLABS-2025M1073615

PATIENT
  Age: 65 Year
  Sex: Male

DRUGS (5)
  1. FENTANYL [Suspect]
     Active Substance: FENTANYL
     Indication: Product used for unknown indication
  2. BUPRENORPHINE [Suspect]
     Active Substance: BUPRENORPHINE
     Indication: Drug use disorder
  3. BUPRENORPHINE [Suspect]
     Active Substance: BUPRENORPHINE
     Dosage: 8 MILLIGRAM, BID, RESTARTED ON SL BUPRENORPHINE, 8MG TWICE DAILY,
  4. NALOXONE [Concomitant]
     Active Substance: NALOXONE
     Indication: Drug use disorder
  5. NALOXONE [Concomitant]
     Active Substance: NALOXONE
     Indication: Drug use disorder

REACTIONS (5)
  - Respiratory depression [Recovered/Resolved]
  - Drug abuse [Unknown]
  - Overdose [Unknown]
  - Toxicity to various agents [Unknown]
  - Drug use disorder [Unknown]
